FAERS Safety Report 5138804-2 (Version None)
Quarter: 2006Q4

REPORT INFORMATION
  Report Type: 
  Country: None (occurrence: None)
  Receive Date: 20061024
  Receipt Date: 20061017
  Transmission Date: 20070319
  Serious: Yes (Death, Hospitalization)
  Sender: FDA-Public Use
  Company Number: 236714K06USA

PATIENT
  Age: 59 Year
  Sex: Female
  Weight: 48.5349 kg

DRUGS (9)
  1. REBIF [Suspect]
     Indication: MULTIPLE SCLEROSIS
     Dosage: 44 MCG, 3 IN 1 WEEKS, SUBCUTANEOUS
     Route: 058
     Dates: start: 20031216, end: 20060605
  2. FOSAMAX [Concomitant]
  3. SYNTHROID [Concomitant]
  4. ARICEPT [Concomitant]
  5. NAMENDA [Concomitant]
  6. PAXIL [Concomitant]
  7. REQUIP [Concomitant]
  8. PRIMIDONE [Concomitant]
  9. DEPAKOTE [Concomitant]

REACTIONS (8)
  - CARDIOGENIC SHOCK [None]
  - ESCHERICHIA URINARY TRACT INFECTION [None]
  - GENERAL PHYSICAL HEALTH DETERIORATION [None]
  - HAEMOLYTIC URAEMIC SYNDROME [None]
  - MYOCARDIAL INFARCTION [None]
  - PROCEDURAL COMPLICATION [None]
  - SEPSIS [None]
  - THROMBOTIC THROMBOCYTOPENIC PURPURA [None]
